FAERS Safety Report 9524694 (Version 1)
Quarter: 2013Q1

REPORT INFORMATION
  Report Type: Spontaneous
  Country: US (occurrence: None)
  Receive Date: 20130313
  Receipt Date: 20130313
  Transmission Date: 20140127
  Serious: No
  Sender: FDA-Public Use
  Company Number: 1000040653

PATIENT
  Age: 34 Year
  Sex: Female

DRUGS (2)
  1. SAVELLA (MILNACIPRAN HYDROCHLORIDE) (12.5 MILLIGRAM, TABLETS) [Suspect]
     Indication: FIBROMYALGIA
     Route: 048
     Dates: start: 201208, end: 2012
  2. TRAMADOL (TRAMADOL) (TRAMADOL) [Concomitant]

REACTIONS (5)
  - Pain [None]
  - Constipation [None]
  - Confusional state [None]
  - Disturbance in attention [None]
  - Memory impairment [None]
